FAERS Safety Report 20454507 (Version 5)
Quarter: 2023Q1

REPORT INFORMATION
  Report Type: Report from Study
  Country: US (occurrence: US)
  Receive Date: 20220210
  Receipt Date: 20230106
  Transmission Date: 20230417
  Serious: Yes (Other)
  Sender: FDA-Public Use
  Company Number: US-NOVARTISTESTPH-NVSC2022US028457

PATIENT
  Sex: Female

DRUGS (2)
  1. GLEEVEC [Suspect]
     Active Substance: IMATINIB MESYLATE
     Indication: Product used for unknown indication
     Dosage: 400 MG
     Route: 065
  2. GLEEVEC [Suspect]
     Active Substance: IMATINIB MESYLATE
     Dosage: 400 MG ALTERNATING WITH 100 MG
     Route: 065

REACTIONS (4)
  - Dementia Alzheimer^s type [Unknown]
  - Muscle spasms [Recovering/Resolving]
  - Wrong technique in product usage process [Unknown]
  - Incorrect dose administered [Unknown]
